FAERS Safety Report 8133317-8 (Version None)
Quarter: 2012Q1

REPORT INFORMATION
  Report Type: 
  Country: None (occurrence: None)
  Receive Date: 20120207
  Receipt Date: 20120131
  Transmission Date: 20120608
  Serious: Yes (Other)
  Sender: FDA-Public Use
  Company Number: WAES 1003USA00780

PATIENT
  Age: 65 Year
  Sex: Female

DRUGS (11)
  1. BISOPROLOL FUMARATE [Concomitant]
  2. ISOSORBIDE MONONITRATE [Concomitant]
  3. RAMIPRIL [Concomitant]
  4. ASPIRIN [Concomitant]
  5. PLACEBO [Suspect]
     Indication: ACUTE CORONARY SYNDROME
     Route: 048
     Dates: start: 20090701, end: 20110801
  6. HYDROXYUREA [Concomitant]
  7. QUININE SO4 [Concomitant]
  8. VYTORIN [Suspect]
     Indication: ACUTE CORONARY SYNDROME
     Dosage: 10-40 MG/DAILY
     Route: 048
     Dates: start: 20090701, end: 20110801
  9. WARFARIN SODIUM [Concomitant]
  10. PLACEBO [Suspect]
     Indication: ACUTE CORONARY SYNDROME
     Dosage: PO
     Route: 048
     Dates: start: 20090701, end: 20110801
  11. LANSOPRAZOLE [Concomitant]

REACTIONS (2)
  - BLOOD LACTATE DEHYDROGENASE INCREASED [None]
  - SQUAMOUS CELL CARCINOMA [None]
